FAERS Safety Report 21823328 (Version 2)
Quarter: 2023Q1

REPORT INFORMATION
  Report Type: Report from Study
  Country: FR (occurrence: None)
  Receive Date: 20230105
  Receipt Date: 20230216
  Transmission Date: 20230417
  Serious: Yes (Hospitalization)
  Sender: FDA-Public Use
  Company Number: 2022A420816

PATIENT
  Age: 55 Year
  Sex: Female
  Weight: 83 kg

DRUGS (2)
  1. EVUSHELD [Suspect]
     Active Substance: CILGAVIMAB\TIXAGEVIMAB
     Indication: COVID-19
     Dosage: 300 MG (TIXAGEVIMAB 150 MG/ CILGAVIMAB 150 MG) ? 1ST DOSE ONCE/SINGLE ADMINISTRATION
     Route: 030
     Dates: start: 20220111
  2. RITUXIMAB [Concomitant]
     Active Substance: RITUXIMAB
     Indication: Immunosuppressant drug therapy

REACTIONS (1)
  - COVID-19 [Unknown]

NARRATIVE: CASE EVENT DATE: 20220915
